FAERS Safety Report 9277547 (Version 1)
Quarter: 2013Q2

REPORT INFORMATION
  Report Type: Spontaneous
  Country: US (occurrence: US)
  Receive Date: 20130508
  Receipt Date: 20130508
  Transmission Date: 20140414
  Serious: Yes (Other)
  Sender: FDA-Public Use
  Company Number: US-ELI_LILLY_AND_COMPANY-US201304008794

PATIENT
  Sex: Female
  Weight: 68.03 kg

DRUGS (7)
  1. CYMBALTA [Suspect]
  2. NEURONTIN [Concomitant]
     Indication: NEURALGIA
     Dosage: 200 MG, BID
  3. ELAVIL [Concomitant]
  4. SEROQUEL [Concomitant]
  5. REQUIP [Concomitant]
  6. MIRAPEX [Concomitant]
  7. NORTRIPTYLINE [Concomitant]

REACTIONS (6)
  - Breast cancer [Unknown]
  - Feeling abnormal [Unknown]
  - Tic [Unknown]
  - Feeling abnormal [Unknown]
  - Weight increased [Unknown]
  - Drug ineffective [Unknown]
